FAERS Safety Report 6762849-X (Version None)
Quarter: 2010Q2

REPORT INFORMATION
  Report Type: 
  Country: None (occurrence: None)
  Receive Date: 20100609
  Receipt Date: 20100528
  Transmission Date: 20101027
  Serious: Yes (Other)
  Sender: FDA-Public Use
  Company Number: US-PFIZER INC-2010068226

PATIENT
  Sex: Female

DRUGS (5)
  1. SUTENT [Suspect]
     Indication: ENDOMETRIAL CANCER METASTATIC
     Dosage: UNK
     Dates: start: 20090101, end: 20100501
  2. AROMASIN [Concomitant]
     Indication: ENDOMETRIAL CANCER METASTATIC
  3. LEVOTHYROXINE [Concomitant]
     Indication: HYPOTHYROIDISM
     Dosage: 100 UG, 1X/DAY
  4. VICODIN [Concomitant]
     Indication: MIGRAINE
     Dosage: 5 MG, AS NEEDED
  5. VICODIN [Concomitant]
     Indication: BACK PAIN

REACTIONS (1)
  - ISCHAEMIC STROKE [None]
